FAERS Safety Report 4886692-1 (Version None)
Quarter: 2006Q1

REPORT INFORMATION
  Report Type: 
  Country: None (occurrence: None)
  Receive Date: 20060120
  Receipt Date: 20050928
  Transmission Date: 20060701
  Serious: Yes (Hospitalization, Disabling)
  Sender: FDA-Public Use
  Company Number: US-ROCHE-419566

PATIENT
  Age: 13 Year
  Sex: Female
  Weight: 108.9 kg

DRUGS (1)
  1. ACCUTANE [Suspect]
     Indication: ACNE
     Route: 048
     Dates: start: 19951211, end: 19960615

REACTIONS (28)
  - ABORTION INCOMPLETE [None]
  - ANXIETY [None]
  - APHTHOUS STOMATITIS [None]
  - CHAPPED LIPS [None]
  - COLITIS [None]
  - COLITIS ULCERATIVE [None]
  - CROHN'S DISEASE [None]
  - DERMAL CYST [None]
  - DRUG EXPOSURE DURING PREGNANCY [None]
  - DRY SKIN [None]
  - DYSMENORRHOEA [None]
  - GASTRIC ULCER [None]
  - GASTRITIS EROSIVE [None]
  - GASTROINTESTINAL DISORDER [None]
  - HEADACHE [None]
  - HELICOBACTER GASTRITIS [None]
  - INFLAMMATORY BOWEL DISEASE [None]
  - INTESTINAL HAEMORRHAGE [None]
  - MULTI-ORGAN DISORDER [None]
  - NODULE [None]
  - OESOPHAGEAL HAEMORRHAGE [None]
  - OESOPHAGITIS [None]
  - PHOTOSENSITIVITY REACTION [None]
  - PLEURITIC PAIN [None]
  - PREGNANCY [None]
  - REFLUX OESOPHAGITIS [None]
  - STRESS [None]
  - UTERINE HAEMORRHAGE [None]
